FAERS Safety Report 16674968 (Version 2)
Quarter: 2019Q3

REPORT INFORMATION
  Report Type: Spontaneous
  Country: US (occurrence: US)
  Receive Date: 20190806
  Receipt Date: 20190809
  Transmission Date: 20191004
  Serious: No
  Sender: FDA-Public Use
  Company Number: US-SA-2019SA209198

PATIENT
  Age: 57 Year
  Sex: Female
  Weight: 77 kg

DRUGS (2)
  1. AUBAGIO [Suspect]
     Active Substance: TERIFLUNOMIDE
     Indication: MULTIPLE SCLEROSIS
     Dosage: 14 MG, QD
     Route: 048
     Dates: start: 201810
  2. AMPYRA [Concomitant]
     Active Substance: DALFAMPRIDINE

REACTIONS (3)
  - Depressed mood [Unknown]
  - Depression [Unknown]
  - Dry skin [Unknown]
